FAERS Safety Report 5464926-2 (Version None)
Quarter: 2007Q3

REPORT INFORMATION
  Report Type: 
  Country: None (occurrence: None)
  Receive Date: 20070921
  Receipt Date: 20070911
  Transmission Date: 20080115
  Serious: Yes (Other)
  Sender: FDA-Public Use
  Company Number: FR-PFIZER INC-2007076898

PATIENT
  Sex: Male

DRUGS (8)
  1. LYRICA [Suspect]
     Indication: SCIATICA
  2. TRAMADOL HCL [Concomitant]
     Indication: SCIATICA
  3. GLUCOVANCE [Concomitant]
  4. CADUET [Concomitant]
  5. PERINDOPRIL ERBUMINE [Concomitant]
  6. TAMSULOSIN HCL [Concomitant]
  7. LEXOMIL [Concomitant]
  8. PLAVIX [Concomitant]

REACTIONS (4)
  - ATRIAL FIBRILLATION [None]
  - CARDIAC FAILURE [None]
  - LEFT VENTRICULAR HYPERTROPHY [None]
  - MITRAL VALVE INCOMPETENCE [None]
